FAERS Safety Report 8829759 (Version 1)
Quarter: 2012Q4

REPORT INFORMATION
  Report Type: 
  Country: FI (occurrence: FI)
  Receive Date: 20121008
  Receipt Date: 20121008
  Transmission Date: 20130627
  Serious: Yes (Other)
  Sender: FDA-Public Use
  Company Number: FI-B.I. PHARMACEUTICALS,INC./RIDGEFIELD-2012-EU-04989GD

PATIENT
  Age: 53 Year
  Sex: Male

DRUGS (2)
  1. ACTILYSE [Suspect]
     Indication: ISCHAEMIC STROKE
     Dosage: total dose 0.9 mg/kg from which 10% given as a bolus and the remaining 90% as a continuous infusion
     Route: 042
     Dates: start: 20070703, end: 20070703
  2. DIPYRIDAMOLE [Suspect]

REACTIONS (2)
  - Cerebral haemorrhage [Unknown]
  - Brain oedema [Unknown]
